FAERS Safety Report 4853752-0 (Version None)
Quarter: 2005Q4

REPORT INFORMATION
  Report Type: 
  Country: None (occurrence: None)
  Receive Date: 20051212
  Receipt Date: 20051121
  Transmission Date: 20060501
  Serious: Yes (Other)
  Sender: FDA-Public Use
  Company Number: US200511002117

PATIENT
  Age: 41 Year
  Sex: Female

DRUGS (3)
  1. FORTEO [Suspect]
  2. FORTEO [Concomitant]
  3. ...................... [Concomitant]

REACTIONS (4)
  - FALL [None]
  - FEMUR FRACTURE [None]
  - MULTIPLE FRACTURES [None]
  - PELVIC FRACTURE [None]
